FAERS Safety Report 16613539 (Version 2)
Quarter: 2019Q3

REPORT INFORMATION
  Report Type: Report from Study
  Country: None (occurrence: US)
  Receive Date: 20190723
  Receipt Date: 20190801
  Transmission Date: 20191004
  Serious: Yes (Death, Hospitalization, Other)
  Sender: FDA-Public Use
  Company Number: US-ABBVIE-19K-163-2862660-00

PATIENT
  Age: 84 Year
  Sex: Male

DRUGS (3)
  1. VENCLEXTA [Suspect]
     Active Substance: VENETOCLAX
     Route: 048
     Dates: start: 20190620, end: 20190627
  2. VENCLEXTA [Suspect]
     Active Substance: VENETOCLAX
     Indication: RENAL CANCER METASTATIC
     Route: 048
     Dates: start: 20190613, end: 20190619
  3. VENCLEXTA [Suspect]
     Active Substance: VENETOCLAX
     Indication: B-CELL SMALL LYMPHOCYTIC LYMPHOMA
     Dosage: TAKE 1 TABLET(S) BY MOUTH DAILY WITH MEALS
     Route: 048
     Dates: start: 20190606, end: 20190612

REACTIONS (5)
  - Hypoxia [Unknown]
  - Disease progression [Fatal]
  - Azotaemia [Unknown]
  - Pancytopenia [Unknown]
  - Metabolic encephalopathy [Unknown]

NARRATIVE: CASE EVENT DATE: 201906
